FAERS Safety Report 17946850 (Version 1)
Quarter: 2020Q2

REPORT INFORMATION
  Report Type: Spontaneous
  Country: IT (occurrence: IT)
  Receive Date: 20200625
  Receipt Date: 20200625
  Transmission Date: 20200714
  Serious: Yes (Life-Threatening, Other)
  Sender: FDA-Public Use
  Company Number: NVSC2020IT113262

PATIENT
  Age: 57 Year
  Sex: Male

DRUGS (9)
  1. LEUCOVORIN. [Suspect]
     Active Substance: LEUCOVORIN
     Indication: ADENOCARCINOMA PANCREAS
     Dosage: 400 MG/M2 ON DAY 1 OF A 14 DAY CYCLE
     Route: 065
     Dates: start: 201605
  2. IRINOTECAN [Suspect]
     Active Substance: IRINOTECAN
     Indication: ADENOCARCINOMA PANCREAS
  3. OXALIPLATIN. [Suspect]
     Active Substance: OXALIPLATIN
     Indication: METASTASES TO LIVER
     Dosage: 85 MG/MQ ON DAY 1 OF A 14 DAY CYCLE
     Route: 065
     Dates: start: 201605
  4. FLUOROURACIL. [Suspect]
     Active Substance: FLUOROURACIL
     Indication: METASTASES TO LIVER
     Dosage: 400 MG/MQ ON DAY 1 OF A 14 DAY CYCLE
     Route: 065
     Dates: start: 201605
  5. OXALIPLATIN. [Suspect]
     Active Substance: OXALIPLATIN
     Indication: ADENOCARCINOMA PANCREAS
     Dosage: 180 MG/MQ ON DAY 1 OF A 14 DAY CYCLE
     Route: 065
     Dates: start: 201605
  6. GEMCITABINE. [Suspect]
     Active Substance: GEMCITABINE
     Indication: ADENOCARCINOMA PANCREAS
     Dosage: 1000 MG/MQ 1,8, 15 Q28
     Route: 065
  7. IRINOTECAN [Suspect]
     Active Substance: IRINOTECAN
     Indication: METASTASES TO LIVER
     Dosage: 180 MG/MQ
     Route: 065
     Dates: start: 201605
  8. LEUCOVORIN. [Suspect]
     Active Substance: LEUCOVORIN
     Indication: METASTASES TO LIVER
  9. FLUOROURACIL. [Suspect]
     Active Substance: FLUOROURACIL
     Indication: ADENOCARCINOMA PANCREAS
     Dosage: 2400 MG/MQ AS A 46 HOUR CONTINUOUS INFUSION STARTING FROM DAY 1 OF A 14 DAY CYCLE
     Route: 050

REACTIONS (2)
  - Neutropenia [Unknown]
  - Metastases to liver [Unknown]

NARRATIVE: CASE EVENT DATE: 2016
